FAERS Safety Report 12928980 (Version 2)
Quarter: 2016Q4

REPORT INFORMATION
  Report Type: Report from Study
  Country: HU (occurrence: HU)
  Receive Date: 20161110
  Receipt Date: 20161114
  Transmission Date: 20170207
  Serious: Yes (Hospitalization, Other)
  Sender: FDA-Public Use
  Company Number: PHHY2016HU111132

PATIENT
  Age: 63 Year
  Sex: Female

DRUGS (6)
  1. POTASSIUM CHLORIDE. [Concomitant]
     Active Substance: POTASSIUM CHLORIDE
     Indication: PRODUCT USED FOR UNKNOWN INDICATION
     Dosage: UNK
     Route: 065
  2. AFINITOR [Suspect]
     Active Substance: EVEROLIMUS
     Indication: BREAST CANCER
     Dosage: 10 MG, QD (ONCE DAILY)
     Route: 048
     Dates: start: 20160719, end: 20160816
  3. FUROSEMIDE. [Concomitant]
     Active Substance: FUROSEMIDE
     Indication: PRODUCT USED FOR UNKNOWN INDICATION
     Dosage: UNK
     Route: 065
  4. POTASSIUM CHLORIDE. [Concomitant]
     Active Substance: POTASSIUM CHLORIDE
     Dosage: ESCALATION OF POTASSIUM CHLORIDE
     Route: 065
  5. EXEMIN [Concomitant]
     Indication: PRODUCT USED FOR UNKNOWN INDICATION
     Dosage: UNK
     Route: 065
     Dates: start: 20160719
  6. AFINITOR [Suspect]
     Active Substance: EVEROLIMUS
     Dosage: 5 MG, QD
     Route: 048
     Dates: start: 20160816, end: 20160921

REACTIONS (14)
  - Vasculitis [Unknown]
  - Oedema peripheral [Unknown]
  - Pruritus [Unknown]
  - Peripheral swelling [Unknown]
  - Blood glucose increased [Unknown]
  - Dizziness [Unknown]
  - Cough [Unknown]
  - Stomatitis [Unknown]
  - Asthenia [Not Recovered/Not Resolved]
  - Thrombocytopenia [Recovered/Resolved]
  - Liver disorder [Recovered/Resolved]
  - Hypokalaemia [Recovered/Resolved]
  - Macule [Unknown]
  - Dermatitis [Recovering/Resolving]

NARRATIVE: CASE EVENT DATE: 20160807
